FAERS Safety Report 18844729 (Version 1)
Quarter: 2021Q1

REPORT INFORMATION
  Report Type: Report from Study
  Country: US (occurrence: US)
  Receive Date: 20210203
  Receipt Date: 20210203
  Transmission Date: 20210419
  Serious: No
  Sender: FDA-Public Use
  Company Number: US-EXELIXIS-CABO-19026350

PATIENT
  Age: 59 Year
  Sex: Male

DRUGS (4)
  1. TRAZODONE [Concomitant]
     Active Substance: TRAZODONE HYDROCHLORIDE
  2. CABOMETYX [Suspect]
     Active Substance: CABOZANTINIB S-MALATE
     Indication: METASTASES TO LIVER
     Dosage: 40 MG
  3. CABOMETYX [Suspect]
     Active Substance: CABOZANTINIB S-MALATE
     Indication: METASTASES TO LUNG
     Dosage: 20 MG
  4. CABOMETYX [Suspect]
     Active Substance: CABOZANTINIB S-MALATE
     Indication: RENAL CELL CARCINOMA
     Dosage: 40 MG, QD (AM  NO FOOD 2 HRS PRIOR )
     Dates: start: 20191218, end: 20200302

REACTIONS (7)
  - Constipation [Unknown]
  - Abdominal discomfort [Unknown]
  - Investigation abnormal [Unknown]
  - Blood pressure increased [Recovering/Resolving]
  - Diarrhoea [Not Recovered/Not Resolved]
  - Decreased appetite [Unknown]
  - Liver function test decreased [Unknown]

NARRATIVE: CASE EVENT DATE: 20191220
